FAERS Safety Report 19793482 (Version 2)
Quarter: 2023Q2

REPORT INFORMATION
  Report Type: Spontaneous
  Country: US (occurrence: US)
  Receive Date: 20210906
  Receipt Date: 20230428
  Transmission Date: 20230721
  Serious: Yes (Other)
  Sender: FDA-Public Use
  Company Number: US-NOVARTISPH-NVSC2021US197113

PATIENT
  Age: 66 Year
  Sex: Male

DRUGS (5)
  1. RANITIDINE [Suspect]
     Active Substance: RANITIDINE
     Indication: Gastrooesophageal reflux disease
     Dosage: 300 MG, QD
     Route: 065
     Dates: start: 201401, end: 201703
  2. RANITIDINE [Suspect]
     Active Substance: RANITIDINE
     Indication: Gastrooesophageal reflux disease
     Dosage: 300 MG, QD
     Route: 065
     Dates: start: 201401, end: 201703
  3. RANITIDINE [Suspect]
     Active Substance: RANITIDINE
     Indication: Product used for unknown indication
     Dosage: UNK
     Route: 065
     Dates: start: 201307, end: 201612
  4. ZANTAC [Suspect]
     Active Substance: RANITIDINE HYDROCHLORIDE
     Indication: Product used for unknown indication
     Dosage: UNK
     Route: 065
     Dates: start: 201307, end: 201612
  5. RANITIDINE HYDROCHLORIDE [Suspect]
     Active Substance: RANITIDINE HYDROCHLORIDE
     Indication: Product used for unknown indication
     Dosage: UNK
     Route: 065
     Dates: start: 201307, end: 201612

REACTIONS (3)
  - Oesophageal carcinoma [Unknown]
  - Prostate cancer [Unknown]
  - Injury [Unknown]

NARRATIVE: CASE EVENT DATE: 20170801
